FAERS Safety Report 19057994 (Version 1)
Quarter: 2021Q1

REPORT INFORMATION
  Report Type: Spontaneous
  Country: JP (occurrence: JP)
  Receive Date: 20210324
  Receipt Date: 20210324
  Transmission Date: 20210420
  Serious: Yes (Hospitalization)
  Sender: FDA-Public Use
  Company Number: JP-ASTRAZENECA-2021A165785

PATIENT
  Age: 70 Year
  Sex: Female

DRUGS (2)
  1. FASLODEX [Suspect]
     Active Substance: FULVESTRANT
     Indication: BREAST CANCER FEMALE
     Route: 030
  2. PALBOCICLIB [Concomitant]
     Active Substance: PALBOCICLIB
     Indication: BREAST CANCER FEMALE
     Route: 065

REACTIONS (2)
  - Cardiac failure acute [Unknown]
  - Thrombophlebitis migrans [Unknown]
